FAERS Safety Report 5291888-3 (Version None)
Quarter: 2007Q2

REPORT INFORMATION
  Report Type: 
  Country: None (occurrence: None)
  Receive Date: 20070410
  Receipt Date: 20070323
  Transmission Date: 20071010
  Serious: Yes (Other)
  Sender: FDA-Public Use
  Company Number: US-JNJFOC-20061106157

PATIENT
  Sex: Female
  Weight: 66.68 kg

DRUGS (6)
  1. REMICADE [Suspect]
     Route: 042
  2. REMICADE [Suspect]
     Route: 042
  3. REMICADE [Suspect]
     Indication: RHEUMATOID ARTHRITIS
     Route: 042
  4. METHOTREXATE [Concomitant]
  5. LODINE [Concomitant]
     Indication: ANTIINFLAMMATORY THERAPY
  6. HYDROCHLOROTHIAZIDE [Concomitant]
     Indication: HYPERTENSION

REACTIONS (11)
  - ALOPECIA [None]
  - ANTINUCLEAR ANTIBODY POSITIVE [None]
  - ASTHMA [None]
  - CEREBROVASCULAR ACCIDENT [None]
  - ERYTHEMA [None]
  - FATIGUE [None]
  - MUSCLE SPASMS [None]
  - RASH [None]
  - RESPIRATORY DISORDER [None]
  - SYSTEMIC LUPUS ERYTHEMATOSUS [None]
  - VISUAL DISTURBANCE [None]
